FAERS Safety Report 23903097 (Version 3)
Quarter: 2024Q3

REPORT INFORMATION
  Report Type: Report from Study
  Country: BE (occurrence: BE)
  Receive Date: 20240527
  Receipt Date: 20240915
  Transmission Date: 20241017
  Serious: Yes (Other)
  Sender: ESPERION THERAPEUTICS
  Company Number: IT-DAIICHI SANKYO EUROPE GMBH- DSE-2024-121243

PATIENT
  Age: 64 Year
  Sex: Male
  Weight: 110 kg

DRUGS (9)
  1. BEMPEDOIC ACID [Suspect]
     Active Substance: BEMPEDOIC ACID
     Indication: Dyslipidaemia
     Dosage: 180 MG, QD
     Route: 048
     Dates: start: 20231005, end: 20240209
  2. LISINOPRIL [Concomitant]
     Active Substance: LISINOPRIL
     Indication: Hypertension
     Dosage: 10 MG, QD
     Route: 048
  3. DAPAGLIFLOZIN [Concomitant]
     Active Substance: DAPAGLIFLOZIN
     Indication: Renal failure
     Dosage: 10 MG, QD
     Route: 048
     Dates: start: 20230201
  4. ASPIRIN [Concomitant]
     Active Substance: ASPIRIN
     Indication: Coronary artery disease
     Dosage: 80 MG, QD
     Route: 048
     Dates: start: 201512
  5. BISOPROLOL [Concomitant]
     Active Substance: BISOPROLOL\BISOPROLOL FUMARATE
     Indication: Hypertension
     Dosage: 2.5 MG, QD
     Route: 048
  6. ACENOCOUMAROL [Concomitant]
     Active Substance: ACENOCOUMAROL
     Indication: Cardiac ventricular thrombosis
     Dosage: 4 MG, QD
     Route: 048
     Dates: start: 201601
  7. ALLOPURINOL [Concomitant]
     Active Substance: ALLOPURINOL
     Indication: Gout
     Dosage: 100 MG, QD
     Route: 048
     Dates: start: 201512
  8. ATORVASTATIN\EZETIMIBE [Concomitant]
     Active Substance: ATORVASTATIN\EZETIMIBE
     Indication: Hypercholesterolaemia
     Dosage: 1 DF, QD (80/10 MG)
     Route: 065
     Dates: start: 20230201
  9. INCLISIRAN [Concomitant]
     Active Substance: INCLISIRAN
     Indication: Prophylaxis
     Dosage: 284 MG, ONCE EVERY 6 MO
     Route: 065
     Dates: start: 20240209

REACTIONS (1)
  - Acute kidney injury [Recovered/Resolved]

NARRATIVE: CASE EVENT DATE: 20231128
